FAERS Safety Report 5883737-7 (Version None)
Quarter: 2008Q3

REPORT INFORMATION
  Report Type: 
  Country: None (occurrence: None)
  Receive Date: 20080912
  Receipt Date: 20080912
  Transmission Date: 20090109
  Serious: Yes (Other)
  Sender: FDA-Public Use
  Company Number: None

PATIENT
  Age: 54 Year
  Sex: Female
  Weight: 72.5755 kg

DRUGS (3)
  1. LAMOTRIGINE [Suspect]
     Indication: AMNESIA
     Dosage: 100MG 2 TIMES A DAY PO
     Route: 048
     Dates: start: 20080823, end: 20080911
  2. LAMOTRIGINE [Suspect]
     Indication: CONFUSIONAL STATE
     Dosage: 100MG 2 TIMES A DAY PO
     Route: 048
     Dates: start: 20080823, end: 20080911
  3. LAMOTRIGINE [Suspect]
     Indication: CONVULSION
     Dosage: 100MG 2 TIMES A DAY PO
     Route: 048
     Dates: start: 20080823, end: 20080911

REACTIONS (4)
  - ACTIVITIES OF DAILY LIVING IMPAIRED [None]
  - AMNESIA [None]
  - CONFUSIONAL STATE [None]
  - THERAPEUTIC RESPONSE UNEXPECTED WITH DRUG SUBSTITUTION [None]
